FAERS Safety Report 23619907 (Version 2)
Quarter: 2024Q1

REPORT INFORMATION
  Report Type: Spontaneous
  Country: IT (occurrence: IT)
  Receive Date: 20240312
  Receipt Date: 20240320
  Transmission Date: 20240410
  Serious: Yes (Other)
  Sender: FDA-Public Use
  Company Number: IT-ROCHE-2684731

PATIENT
  Sex: Male

DRUGS (7)
  1. CYCLOPHOSPHAMIDE [Suspect]
     Active Substance: CYCLOPHOSPHAMIDE
     Indication: Lymphoma
     Dosage: SIXTH CYCLE OF CHOP ON 06/AUG/2020
     Route: 042
  2. DOXORUBICIN [Suspect]
     Active Substance: DOXORUBICIN
     Indication: Lymphoma
     Dosage: SIXTH CYCLE OF CHOP ON 06/AUG/2020
     Route: 042
  3. OBINUTUZUMAB [Suspect]
     Active Substance: OBINUTUZUMAB
     Indication: Follicular lymphoma
     Dosage: 1000.000MG
     Route: 042
     Dates: start: 20200420
  4. PREDNISONE [Suspect]
     Active Substance: PREDNISONE
     Indication: Lymphoma
     Dosage: SIXTH CYCLE OF CHOP ON 06/AUG/2020PREDNISOLONE 100 MG DAILY ON 06/AUG/2020 UNTIL 10/AUG/2020.
     Route: 042
     Dates: start: 20200806, end: 20200810
  5. PREDNISONE [Suspect]
     Active Substance: PREDNISONE
     Dosage: SIXTH CYCLE OF CHOP ON 06/AUG/2020
     Route: 042
  6. VINCRISTINE [Suspect]
     Active Substance: VINCRISTINE
     Indication: Lymphoma
     Dosage: SIXTH CYCLE OF CHOP ON 06/AUG/2020
     Route: 042
  7. Palmidrol;Polydatin [Concomitant]
     Indication: Product used for unknown indication
     Dosage: UNK
     Route: 065
     Dates: start: 20220527

REACTIONS (4)
  - Leukopenia [Recovered/Resolved]
  - Neutropenia [Recovered/Resolved]
  - Neutropenia [Recovered/Resolved]
  - Urethritis [Recovered/Resolved]

NARRATIVE: CASE EVENT DATE: 20200817
